FAERS Safety Report 11319434 (Version 1)
Quarter: 2015Q3

REPORT INFORMATION
  Report Type: Spontaneous
  Country: US (occurrence: None)
  Receive Date: 20150728
  Receipt Date: 20150728
  Transmission Date: 20151125
  Serious: Yes (Hospitalization)
  Sender: FDA-Public Use
  Company Number: None

PATIENT
  Age: 66 Year
  Sex: Male
  Weight: 75.6 kg

DRUGS (1)
  1. EVEROLIMUS [Suspect]
     Active Substance: EVEROLIMUS
     Dates: end: 20150715

REACTIONS (3)
  - Thyroid cancer metastatic [None]
  - Spinal cord compression [None]
  - Malignant neoplasm progression [None]

NARRATIVE: CASE EVENT DATE: 20150722
